FAERS Safety Report 19382521 (Version 5)
Quarter: 2022Q1

REPORT INFORMATION
  Report Type: Spontaneous
  Country: US (occurrence: US)
  Receive Date: 20210607
  Receipt Date: 20220125
  Transmission Date: 20220423
  Serious: Yes (Hospitalization, Other)
  Sender: FDA-Public Use
  Company Number: US-SMITH AND NEPHEW, INC-2021SMT00024

PATIENT
  Sex: Female
  Weight: 114.74 kg

DRUGS (3)
  1. COLLAGENASE SANTYL [Suspect]
     Active Substance: COLLAGENASE CLOSTRIDIUM HISTOLYTICUM
     Indication: Skin ulcer
     Dosage: UNK AMOUNT ^JUST WHEN I WENT TO THE WOUND CLINIC^ ON BOTH LEGS
     Route: 061
     Dates: start: 2017, end: 20170706
  2. COLLAGENASE SANTYL [Suspect]
     Active Substance: COLLAGENASE CLOSTRIDIUM HISTOLYTICUM
     Dosage: UNK AMOUNT ON LOWER LEGS
     Route: 061
     Dates: start: 2017, end: 20170706
  3. UNSPECIFIED INGREDIENT [Concomitant]
     Active Substance: UNSPECIFIED INGREDIENT

REACTIONS (35)
  - Atrial fibrillation [Not Recovered/Not Resolved]
  - Hospitalisation [Recovered/Resolved]
  - Shoulder operation [Unknown]
  - Swollen tongue [Unknown]
  - Dizziness [Unknown]
  - Administration site pain [Recovered/Resolved]
  - Skin exfoliation [Unknown]
  - Sticky skin [Not Recovered/Not Resolved]
  - Vomiting [Unknown]
  - Arthropathy [Unknown]
  - Dermal absorption increased [Recovered/Resolved]
  - Speech disorder [Unknown]
  - Gait disturbance [Recovered/Resolved]
  - Hypophagia [Unknown]
  - Fear of death [Unknown]
  - Condition aggravated [Unknown]
  - Drug ineffective [Recovered/Resolved]
  - Feeling cold [Unknown]
  - Somnolence [Unknown]
  - Off label use [Recovered/Resolved]
  - Limb injury [Recovered/Resolved]
  - Angiopathy [Recovered/Resolved]
  - Skin ulcer [Not Recovered/Not Resolved]
  - Drug hypersensitivity [Recovering/Resolving]
  - Dysphagia [Unknown]
  - Tongue disorder [Unknown]
  - Pain [Recovering/Resolving]
  - Wound secretion [Unknown]
  - Fall [Recovered/Resolved]
  - Scar [Not Recovered/Not Resolved]
  - Unevaluable event [Not Recovered/Not Resolved]
  - Performance status decreased [Recovered/Resolved]
  - Speech disorder [Recovered/Resolved]
  - Dyspnoea [Unknown]
  - Thyroid mass [Unknown]

NARRATIVE: CASE EVENT DATE: 20170101
